FAERS Safety Report 17317158 (Version 1)
Quarter: 2020Q1

REPORT INFORMATION
  Report Type: Spontaneous
  Country: DE (occurrence: DE)
  Receive Date: 20200124
  Receipt Date: 20200124
  Transmission Date: 20200409
  Serious: Yes (Life-Threatening, Hospitalization, Other)
  Sender: FDA-Public Use
  Company Number: DE-MYLANLABS-2020M1007414

PATIENT
  Age: 76 Year
  Sex: Male

DRUGS (2)
  1. MOXIFLOXACIN. [Suspect]
     Active Substance: MOXIFLOXACIN
     Indication: PRODUCT USED FOR UNKNOWN INDICATION
     Dosage: 400 MILLIGRAM, QD
  2. BRILIQUE [Suspect]
     Active Substance: TICAGRELOR
     Indication: ANEURYSM
     Dosage: 80 MILLIGRAM, BID
     Route: 048

REACTIONS (5)
  - Tachycardia [Unknown]
  - Pneumonia aspiration [Unknown]
  - Anaphylactic reaction [Unknown]
  - Heart rate increased [Unknown]
  - Blood pressure decreased [Unknown]
